FAERS Safety Report 9837659 (Version 2)
Quarter: 2014Q1

REPORT INFORMATION
  Report Type: Spontaneous
  Country: FR (occurrence: FR)
  Receive Date: 20140123
  Receipt Date: 20140211
  Transmission Date: 20141002
  Serious: No
  Sender: FDA-Public Use
  Company Number: FR-JNJFOC-20140109885

PATIENT
  Age: 60 Year
  Sex: Male
  Weight: 90 kg

DRUGS (2)
  1. DUROGESIC [Suspect]
     Indication: BACK PAIN
     Route: 062
     Dates: start: 20140114, end: 20140127
  2. DUROGESIC [Suspect]
     Indication: BACK PAIN
     Route: 062

REACTIONS (3)
  - Product quality issue [Unknown]
  - Wrong technique in drug usage process [Unknown]
  - Therapeutic response decreased [Unknown]
